FAERS Safety Report 13642520 (Version 1)
Quarter: 2017Q2

REPORT INFORMATION
  Report Type: Spontaneous
  Country: US (occurrence: US)
  Receive Date: 20170612
  Receipt Date: 20170612
  Transmission Date: 20170830
  Serious: No
  Sender: FDA-Public Use
  Company Number: US-GLAXOSMITHKLINE-US2017086327

PATIENT
  Sex: Male

DRUGS (10)
  1. ASPIRIN. [Concomitant]
     Active Substance: ASPIRIN
  2. COREG [Concomitant]
     Active Substance: CARVEDILOL
  3. DOXAZOSIN [Concomitant]
     Active Substance: DOXAZOSIN\DOXAZOSIN MESYLATE
  4. LASIX [Concomitant]
     Active Substance: FUROSEMIDE
  5. OMEPRAZOLE. [Concomitant]
     Active Substance: OMEPRAZOLE
  6. BREO ELLIPTA [Suspect]
     Active Substance: FLUTICASONE FUROATE\VILANTEROL TRIFENATATE
     Indication: CHRONIC OBSTRUCTIVE PULMONARY DISEASE
     Dosage: 1 PUFF(S), 1D
     Dates: start: 201702
  7. GABAPENTIN. [Concomitant]
     Active Substance: GABAPENTIN
  8. VITAMIN D3 [Concomitant]
     Active Substance: CHOLECALCIFEROL
  9. OXYGEN. [Concomitant]
     Active Substance: OXYGEN
  10. ENTRESTO [Concomitant]
     Active Substance: SACUBITRIL\VALSARTAN

REACTIONS (3)
  - Respiration abnormal [Recovering/Resolving]
  - Device use error [Unknown]
  - Drug ineffective [Recovering/Resolving]
